FAERS Safety Report 5523482-0 (Version None)
Quarter: 2007Q4

REPORT INFORMATION
  Report Type: 
  Country: None (occurrence: None)
  Receive Date: 20071116
  Receipt Date: 20071105
  Transmission Date: 20080405
  Serious: Yes (Hospitalization)
  Sender: FDA-Public Use
  Company Number: GXKR2007JP9510

PATIENT
  Age: 24 Year
  Sex: Male

DRUGS (4)
  1. ZONISAMIDE [Suspect]
     Indication: AGGRESSION
     Dosage: 160 MG ; 300 MG ; 600 MG
  2. CARBAMAZEPINE [Suspect]
     Dosage: 400 MG
  3. RISPERIDONE [Concomitant]
  4. CLONAZEPAM [Concomitant]

REACTIONS (13)
  - AGGRESSION [None]
  - AGITATION [None]
  - ASPARTATE AMINOTRANSFERASE INCREASED [None]
  - CEREBRAL PALSY [None]
  - DRUG INEFFECTIVE [None]
  - DRUG INTERACTION [None]
  - DRUG WITHDRAWAL SYNDROME [None]
  - DYSKINESIA [None]
  - DYSPHAGIA [None]
  - GAIT DISTURBANCE [None]
  - NEUROLEPTIC MALIGNANT SYNDROME [None]
  - SOMNOLENCE [None]
  - TORTICOLLIS [None]
